FAERS Safety Report 17388422 (Version 1)
Quarter: 2020Q1

REPORT INFORMATION
  Report Type: Report from Study
  Country: TH (occurrence: TH)
  Receive Date: 20200207
  Receipt Date: 20200207
  Transmission Date: 20200409
  Serious: Yes (Other)
  Sender: FDA-Public Use
  Company Number: TH-MYLANLABS-2020M1014072

PATIENT
  Age: 23 Year
  Sex: Male

DRUGS (3)
  1. LAMIVUDINE. [Suspect]
     Active Substance: LAMIVUDINE
     Indication: HIV INFECTION
     Route: 065
  2. TENOFOVIR DISOPROXIL [Suspect]
     Active Substance: TENOFOVIR DISOPROXIL
     Indication: HIV INFECTION
     Route: 065
  3. EFAVIRENZ. [Suspect]
     Active Substance: EFAVIRENZ
     Indication: HIV INFECTION
     Route: 065

REACTIONS (2)
  - Hepatic fibrosis [Not Recovered/Not Resolved]
  - Nonalcoholic fatty liver disease [Not Recovered/Not Resolved]
